FAERS Safety Report 6273847-7 (Version None)
Quarter: 2009Q3

REPORT INFORMATION
  Report Type: 
  Country: None (occurrence: None)
  Receive Date: 20090720
  Receipt Date: 20090708
  Transmission Date: 20100115
  Serious: Yes (Other)
  Sender: FDA-Public Use
  Company Number: US-PFIZER INC-2009239616

PATIENT
  Sex: Male
  Weight: 68.027 kg

DRUGS (3)
  1. DILANTIN [Suspect]
     Indication: CEREBROVASCULAR ACCIDENT
     Dosage: UNK
     Route: 048
     Dates: end: 20090707
  2. ACETYLSALICYLIC ACID [Concomitant]
     Dosage: UNK
  3. VITAMINS [Concomitant]
     Dosage: UNK

REACTIONS (4)
  - ANTICONVULSANT DRUG LEVEL INCREASED [None]
  - MALAISE [None]
  - NAUSEA [None]
  - SPEECH DISORDER [None]
